FAERS Safety Report 20235192 (Version 2)
Quarter: 2022Q1

REPORT INFORMATION
  Report Type: Spontaneous
  Country: US (occurrence: None)
  Receive Date: 20211228
  Receipt Date: 20220121
  Transmission Date: 20220424
  Serious: No
  Sender: FDA-Public Use
  Company Number: 2021A872722

PATIENT
  Age: 28403 Day
  Sex: Female
  Weight: 86.2 kg

DRUGS (1)
  1. BREZTRI [Suspect]
     Active Substance: BUDESONIDE\FORMOTEROL\GLYCOPYRROLATE
     Indication: Asthma
     Dosage: 160/9/4.8 MCG 1 PUFF TWICE DAILY
     Route: 055
     Dates: start: 20211209, end: 20211211

REACTIONS (11)
  - Arthralgia [Unknown]
  - Discomfort [Unknown]
  - Gait disturbance [Not Recovered/Not Resolved]
  - Joint stiffness [Unknown]
  - Mobility decreased [Recovering/Resolving]
  - Myalgia [Unknown]
  - Pain [Unknown]
  - Vision blurred [Unknown]
  - Palpitations [Recovered/Resolved]
  - Muscle spasms [Unknown]
  - Off label use [Unknown]

NARRATIVE: CASE EVENT DATE: 20211209
